FAERS Safety Report 4684138-X (Version None)
Quarter: 2005Q2

REPORT INFORMATION
  Report Type: 
  Country: None (occurrence: None)
  Receive Date: 20050602
  Receipt Date: 20050418
  Transmission Date: 20051028
  Serious: No
  Sender: FDA-Public Use
  Company Number: 200510776BWH

PATIENT
  Age: 81 Year
  Sex: Male

DRUGS (3)
  1. LEVITRA [Suspect]
     Dosage: 20 MG, QD, ORAL
     Route: 048
  2. BLOOD PRESSURE PILLS [Concomitant]
  3. MULTI-VITAMINS [Concomitant]

REACTIONS (1)
  - ERECTILE DYSFUNCTION [None]
